FAERS Safety Report 20927181 (Version 3)
Quarter: 2022Q3

REPORT INFORMATION
  Report Type: Report from Study
  Country: CA (occurrence: CA)
  Receive Date: 20220607
  Receipt Date: 20220902
  Transmission Date: 20221027
  Serious: Yes (Other)
  Sender: FDA-Public Use
  Company Number: CA-TAKEDA-2022TUS036921

PATIENT
  Age: 65 Year
  Sex: Female

DRUGS (1)
  1. VEDOLIZUMAB [Suspect]
     Active Substance: VEDOLIZUMAB
     Indication: Crohn^s disease
     Dosage: 300 MILLIGRAM
     Route: 042
     Dates: start: 20220516, end: 20220627

REACTIONS (8)
  - Rectal abscess [Unknown]
  - Anal abscess [Unknown]
  - Joint swelling [Unknown]
  - Vaginal disorder [Unknown]
  - Pruritus genital [Unknown]
  - Anal fistula [Unknown]
  - Rash erythematous [Unknown]
  - Therapeutic response decreased [Unknown]
